FAERS Safety Report 5305241-7 (Version None)
Quarter: 2007Q2

REPORT INFORMATION
  Report Type: 
  Country: None (occurrence: None)
  Receive Date: 20070424
  Receipt Date: 20070412
  Transmission Date: 20071010
  Serious: Yes (Hospitalization)
  Sender: FDA-Public Use
  Company Number: FR-JNJFOC-20070402889

PATIENT
  Age: 27 Year
  Sex: Female
  Weight: 52 kg

DRUGS (6)
  1. REMICADE [Suspect]
     Indication: CROHN'S DISEASE
     Route: 042
  2. CORTANCYL [Concomitant]
     Route: 048
  3. MOTILIUM [Concomitant]
  4. IDEOS [Concomitant]
  5. NEXIUM [Concomitant]
  6. POTASSIUM SUPPLEMENT [Concomitant]

REACTIONS (2)
  - CERVICAL DYSPLASIA [None]
  - PAPILLOMA VIRAL INFECTION [None]
